FAERS Safety Report 4928310-X (Version None)
Quarter: 2006Q1

REPORT INFORMATION
  Report Type: 
  Country: None (occurrence: None)
  Receive Date: 20060127
  Receipt Date: 20051215
  Transmission Date: 20060701
  Serious: Yes (Other)
  Sender: FDA-Public Use
  Company Number: 2005169434

PATIENT
  Age: 80 Year
  Sex: Male
  Weight: 77.1115 kg

DRUGS (6)
  1. LYRICA [Suspect]
     Dosage: 300 MG (150 MG, 2 IN 1 D), ORAL
     Route: 048
     Dates: start: 20051201, end: 20051201
  2. ALLEGRA [Concomitant]
  3. AMIODARONE HYDROCHLORIDE [Concomitant]
  4. TRAMADOL HCL [Concomitant]
  5. TRIAZOLAM [Concomitant]
  6. HYDROCODONE BITARTRATE [Concomitant]

REACTIONS (1)
  - FEELING DRUNK [None]
